FAERS Safety Report 7650687-5 (Version None)
Quarter: 2011Q3

REPORT INFORMATION
  Report Type: 
  Country: None (occurrence: None)
  Receive Date: 20110802
  Receipt Date: 20110728
  Transmission Date: 20111222
  Serious: Yes (Death)
  Sender: FDA-Public Use
  Company Number: TR-ABBOTT-11P-161-0842314-00

PATIENT
  Age: 18 Year
  Sex: Female
  Weight: 60 kg

DRUGS (1)
  1. TARKA [Suspect]
     Indication: COMPLETED SUICIDE
     Dosage: 240/4 MG X 28
     Route: 048
     Dates: start: 20110728, end: 20110728

REACTIONS (4)
  - INTENTIONAL OVERDOSE [None]
  - COMPLETED SUICIDE [None]
  - CARDIAC ARREST [None]
  - WRONG DRUG ADMINISTERED [None]
